FAERS Safety Report 19477256 (Version 1)
Quarter: 2021Q2

REPORT INFORMATION
  Report Type: Spontaneous
  Country: US (occurrence: US)
  Receive Date: 20210630
  Receipt Date: 20210630
  Transmission Date: 20210717
  Serious: No
  Sender: FDA-Public Use
  Company Number: None

PATIENT
  Age: 67 Year
  Sex: Male
  Weight: 125 kg

DRUGS (1)
  1. OXALIPLATIN (OXALIPLATIN 100MG/VIL (PF) INJ) [Suspect]
     Active Substance: OXALIPLATIN
     Indication: RECTAL CANCER
     Route: 042
     Dates: start: 20200616, end: 20201112

REACTIONS (5)
  - Cough [None]
  - Respiratory depression [None]
  - Anxiety [None]
  - Anaphylactic reaction [None]
  - Wheezing [None]

NARRATIVE: CASE EVENT DATE: 20201112
